FAERS Safety Report 20034670 (Version 1)
Quarter: 2021Q4

REPORT INFORMATION
  Report Type: Spontaneous
  Country: None (occurrence: AU)
  Receive Date: 20211104
  Receipt Date: 20211104
  Transmission Date: 20220303
  Serious: Yes (Other)
  Sender: FDA-Public Use
  Company Number: AU-Provepharm S.A.S.-2121471

PATIENT
  Age: 48 Year
  Sex: Female

DRUGS (1)
  1. METHYLENE BLUE [Suspect]
     Active Substance: METHYLENE BLUE
     Indication: Product used for unknown indication
     Route: 065

REACTIONS (4)
  - Angioedema [Unknown]
  - Hypotension [Unknown]
  - Tachycardia [Unknown]
  - Urticaria [Unknown]
